FAERS Safety Report 7786409-7 (Version None)
Quarter: 2011Q3

REPORT INFORMATION
  Report Type: 
  Country: None (occurrence: None)
  Receive Date: 20110928
  Receipt Date: 20110928
  Transmission Date: 20111222
  Serious: No
  Sender: FDA-Public Use
  Company Number: None

PATIENT
  Age: 55 Year
  Sex: Male
  Weight: 88.4514 kg

DRUGS (1)
  1. TESTOSTERONE CYPIONATE 200 MG / ML 1.2 ML WATSON PHARMA (ABNAXIS SCIEN [Suspect]
     Indication: HYPOGONADISM
     Dosage: 200 MG /ML 1.2 ML BIWEEKLY IM
     Route: 030
     Dates: start: 20110829

REACTIONS (4)
  - INJECTION SITE ERYTHEMA [None]
  - INJECTION SITE PRURITUS [None]
  - INJECTION SITE INDURATION [None]
  - INJECTION SITE MASS [None]
